FAERS Safety Report 14036231 (Version 1)
Quarter: 2017Q4

REPORT INFORMATION
  Report Type: Spontaneous
  Country: US (occurrence: US)
  Receive Date: 20171003
  Receipt Date: 20171003
  Transmission Date: 20180321
  Serious: No
  Sender: FDA-Public Use
  Company Number: US-ROCHE-1976601

PATIENT
  Age: 29 Year
  Sex: Male
  Weight: 102.15 kg

DRUGS (2)
  1. OCREVUS [Suspect]
     Active Substance: OCRELIZUMAB
     Indication: PRIMARY PROGRESSIVE MULTIPLE SCLEROSIS
     Dosage: DAY 1, DAY 14, THEN EVERY 6 MONTHS
     Route: 042
     Dates: start: 20170808
  2. DIPHENHYDRAMINE. [Concomitant]
     Active Substance: DIPHENHYDRAMINE
     Indication: PREMEDICATION
     Route: 065
     Dates: start: 20170808, end: 20170808

REACTIONS (1)
  - Headache [Not Recovered/Not Resolved]

NARRATIVE: CASE EVENT DATE: 20170808
